FAERS Safety Report 18882314 (Version 1)
Quarter: 2021Q1

REPORT INFORMATION
  Report Type: Spontaneous
  Country: US (occurrence: US)
  Receive Date: 20210212
  Receipt Date: 20210212
  Transmission Date: 20210420
  Serious: Yes (Hospitalization)
  Sender: FDA-Public Use
  Company Number: US-SPECGX-T202100198

PATIENT
  Age: 42 Year
  Sex: Male

DRUGS (4)
  1. HYDROMORPHONE [Suspect]
     Active Substance: HYDROMORPHONE
     Indication: PAIN
     Dosage: 4 MILLIGRAM, PRN (Q2H)
     Route: 048
  2. HYDROXYUREA. [Suspect]
     Active Substance: HYDROXYUREA
     Indication: SICKLE CELL ANAEMIA
     Dosage: 1500 MILLIGRAM, QD
     Route: 065
  3. HYDROMORPHONE [Suspect]
     Active Substance: HYDROMORPHONE
     Dosage: UNK (UP TO 16 MG, EVERY 2 HOUR)
     Route: 048
  4. OXYCODONE/ACETAMINOPHEN [Suspect]
     Active Substance: ACETAMINOPHEN\OXYCODONE HYDROCHLORIDE
     Indication: PAIN
     Dosage: 5 MILLIGRAM, TID PRN
     Route: 065

REACTIONS (2)
  - Withdrawal syndrome [Recovering/Resolving]
  - Sickle cell anaemia with crisis [Recovering/Resolving]
